FAERS Safety Report 5659351-5 (Version None)
Quarter: 2008Q1

REPORT INFORMATION
  Report Type: 
  Country: None (occurrence: None)
  Receive Date: 20080306
  Receipt Date: 20080306
  Transmission Date: 20080703
  Serious: Yes (Hospitalization)
  Sender: FDA-Public Use
  Company Number: None

PATIENT
  Sex: Male
  Weight: 77.57 kg

DRUGS (7)
  1. SUNITINIB [Suspect]
     Indication: METASTASES TO CENTRAL NERVOUS SYSTEM
     Dosage: 37.5MG/DAILY/ORAL/PILL
     Route: 048
     Dates: start: 20070716, end: 20070824
  2. SUNITINIB [Suspect]
     Indication: NON-SMALL CELL LUNG CANCER
     Dosage: 37.5MG/DAILY/ORAL/PILL
     Route: 048
     Dates: start: 20070716, end: 20070824
  3. ADVAIR DISKUS 100/50 [Concomitant]
  4. DECADRON [Concomitant]
  5. KEPPRA [Concomitant]
  6. PEPCID [Concomitant]
  7. TYLENOL (CAPLET) [Concomitant]

REACTIONS (6)
  - ASTHENIA [None]
  - CEREBROVASCULAR ACCIDENT [None]
  - CONVULSION [None]
  - LETHARGY [None]
  - NEOPLASM PROGRESSION [None]
  - SPEECH DISORDER [None]
